FAERS Safety Report 16951612 (Version 1)
Quarter: 2019Q4

REPORT INFORMATION
  Report Type: Spontaneous
  Country: US (occurrence: US)
  Receive Date: 20190903
  Receipt Date: 20190903
  Transmission Date: 20200122
  Serious: No
  Sender: FDA-Public Use
  Company Number: None

PATIENT
  Age: 59 Year
  Sex: Female

DRUGS (1)
  1. PACLITAXEL MDV 6MG/ML NOVAPLUS/HOSPIRA [Suspect]
     Active Substance: PACLITAXEL
     Indication: BREAST CANCER
     Dosage: ?          OTHER ROUTE:IV?
     Dates: start: 201811, end: 201908

REACTIONS (1)
  - Anaemia [None]

NARRATIVE: CASE EVENT DATE: 20190711
